FAERS Safety Report 14987319 (Version 1)
Quarter: 2018Q2

REPORT INFORMATION
  Report Type: Spontaneous
  Country: US (occurrence: US)
  Receive Date: 20180608
  Receipt Date: 20180608
  Transmission Date: 20180711
  Serious: No
  Sender: FDA-Public Use
  Company Number: US-TEVA-2018-US-900780

PATIENT
  Sex: Female

DRUGS (2)
  1. BUPROPION. [Suspect]
     Active Substance: BUPROPION
     Indication: PAIN
  2. BUPROPION. [Suspect]
     Active Substance: BUPROPION
     Indication: HYPERSENSITIVITY
     Dosage: 300 MILLIGRAM DAILY;
     Route: 065
     Dates: start: 2014

REACTIONS (2)
  - Therapeutic response unexpected [Unknown]
  - Product use in unapproved indication [Unknown]
